FAERS Safety Report 6657357-0 (Version None)
Quarter: 2010Q1

REPORT INFORMATION
  Report Type: 
  Country: None (occurrence: None)
  Receive Date: 20100330
  Receipt Date: 20100322
  Transmission Date: 20100710
  Serious: Yes (Hospitalization)
  Sender: FDA-Public Use
  Company Number: DE-WYE-G05824110

PATIENT
  Sex: Female

DRUGS (3)
  1. LORAZEPAM [Suspect]
     Dosage: 30 TABLETS (OVERDOSE AMOUNT 30 MG)
     Route: 048
     Dates: start: 20100322, end: 20100322
  2. LYRICA [Suspect]
     Dosage: 30 TABLETS OF UNKNOWN STRENGTH (OVERDOSE AMOUNT UNKNOWN)
     Route: 048
     Dates: start: 20100322, end: 20100322
  3. IBUPROFEN [Suspect]
     Dosage: 6 TABLETS (OVERDOSE AMOUNT 3600 MG)
     Route: 048
     Dates: start: 20100322, end: 20100322

REACTIONS (4)
  - INTENTIONAL OVERDOSE [None]
  - SOMNOLENCE [None]
  - SUICIDE ATTEMPT [None]
  - TACHYCARDIA [None]
